FAERS Safety Report 6608217-2 (Version None)
Quarter: 2010Q1

REPORT INFORMATION
  Report Type: 
  Country: None (occurrence: None)
  Receive Date: 20100301
  Receipt Date: 20100222
  Transmission Date: 20100710
  Serious: Yes (Hospitalization)
  Sender: FDA-Public Use
  Company Number: FR-ROCHE-680939

PATIENT
  Sex: Male
  Weight: 74 kg

DRUGS (3)
  1. BEVACIZUMAB [Suspect]
     Indication: RECTAL CANCER
     Dosage: LAST DOSE PRIOR TO SAE: 14 DECEMBER 2009.
     Route: 042
     Dates: start: 20091119
  2. 5-FU [Suspect]
     Indication: RECTAL CANCER
     Dosage: FREQUENCY: 5 DAYS PER WEEK.  LAST DOSE PRIOR TO SAE: 17 DECEMBER 2009. TEMORARILY INTURUPPTED
     Route: 042
     Dates: start: 20091130, end: 20091217
  3. 5-FU [Suspect]
     Dosage: FREQUENCY: 5 DAYS PER WEEK.
     Route: 042
     Dates: start: 20091222

REACTIONS (1)
  - SINUS ARRHYTHMIA [None]
